FAERS Safety Report 5941923-1 (Version None)
Quarter: 2008Q4

REPORT INFORMATION
  Report Type: 
  Country: None (occurrence: None)
  Receive Date: 20081105
  Receipt Date: 20081022
  Transmission Date: 20090506
  Serious: Yes (Death)
  Sender: FDA-Public Use
  Company Number: NL-GENENTECH-268702

PATIENT
  Sex: Female

DRUGS (4)
  1. BEVACIZUMAB [Suspect]
     Indication: COLORECTAL CANCER
     Dosage: 660 UNIT, UNK
     Route: 065
     Dates: start: 20060718, end: 20070214
  2. CAPECITABINE [Suspect]
     Indication: COLORECTAL CANCER
     Dosage: 5000 UNIT, UNK
     Route: 065
     Dates: start: 20060718
  3. OXALIPLATIN [Suspect]
     Indication: COLORECTAL CANCER
     Dosage: 50 UNIT, UNK
     Route: 065
     Dates: start: 20060618, end: 20061108
  4. VENTOLIN DS [Concomitant]
     Indication: DRUG USE FOR UNKNOWN INDICATION

REACTIONS (1)
  - SUDDEN DEATH [None]
